FAERS Safety Report 6238091-8 (Version None)
Quarter: 2009Q2

REPORT INFORMATION
  Report Type: 
  Country: None (occurrence: None)
  Receive Date: 20090617
  Receipt Date: 20090617
  Transmission Date: 20091009
  Serious: Yes (Death, Life-Threatening)
  Sender: FDA-Public Use
  Company Number: None

PATIENT
  Sex: Male
  Weight: 69.1 kg

DRUGS (13)
  1. PEG-INTRON [Suspect]
     Indication: HEPATITIS C
     Dosage: OFF TREATMENT INFECTION/POST TX; ONCE WEEKLYL SUBCUTANEOUS
     Route: 058
     Dates: start: 20080421, end: 20081006
  2. REBETOL [Suspect]
     Indication: HEPATITIS C
     Dosage: OFF TREATMENT/POST TX; TWICE DAILY; ORAL - CAPSULES
     Route: 048
     Dates: start: 20080421, end: 20081006
  3. PROCRIT [Suspect]
     Dosage: OFF TREATMENT INFECTION/POST TX; ONCE WEEKLY; SUBCUTANEOUS
     Route: 058
     Dates: start: 20080822
  4. CELLCEPT [Concomitant]
  5. PROGRAF [Concomitant]
  6. SEPTRA [Concomitant]
  7. PROTONIX [Concomitant]
  8. OXYCONTIN [Concomitant]
  9. LUNESTA [Concomitant]
  10. LORAZEPAM [Concomitant]
  11. OXYCODONE HCL [Concomitant]
  12. TORSEMIDE [Concomitant]
  13. AMIODARONE HCL [Concomitant]

REACTIONS (14)
  - BONE MARROW DISORDER [None]
  - CARDIAC FAILURE [None]
  - DISEASE RECURRENCE [None]
  - GASTROINTESTINAL DISORDER [None]
  - HEPATITIS C RNA POSITIVE [None]
  - LIVER TRANSPLANT [None]
  - NERVOUS SYSTEM DISORDER [None]
  - PANCYTOPENIA [None]
  - PARAPROTEINAEMIA [None]
  - PLEURAL DISORDER [None]
  - PLEURAL EFFUSION [None]
  - PRIMARY AMYLOIDOSIS [None]
  - RENAL DISORDER [None]
  - SOFT TISSUE DISORDER [None]
